FAERS Safety Report 18023371 (Version 1)
Quarter: 2020Q3

REPORT INFORMATION
  Report Type: Spontaneous
  Country: US (occurrence: US)
  Receive Date: 20200715
  Receipt Date: 20200715
  Transmission Date: 20201103
  Serious: No
  Sender: FDA-Public Use
  Company Number: US-ASTRAZENECA-2020SE85961

PATIENT
  Sex: Female
  Weight: 77.1 kg

DRUGS (2)
  1. PIOGLITAZONE. [Concomitant]
     Active Substance: PIOGLITAZONE
     Indication: DIABETES MELLITUS
     Route: 048
  2. BYDUREON [Suspect]
     Active Substance: EXENATIDE
     Indication: TYPE 2 DIABETES MELLITUS
     Route: 058

REACTIONS (9)
  - Incorrect dose administered by device [Unknown]
  - Injection site pain [Unknown]
  - Epistaxis [Unknown]
  - Device issue [Unknown]
  - Blood glucose increased [Unknown]
  - Meniscus injury [Unknown]
  - Hypertension [Unknown]
  - Haemoptysis [Unknown]
  - Weight increased [Unknown]
